FAERS Safety Report 19372648 (Version 1)
Quarter: 2021Q2

REPORT INFORMATION
  Report Type: Spontaneous
  Country: US (occurrence: US)
  Receive Date: 20210604
  Receipt Date: 20210604
  Transmission Date: 20210717
  Serious: Yes (Hospitalization)
  Sender: FDA-Public Use
  Company Number: US-ELI_LILLY_AND_COMPANY-US202105010648

PATIENT
  Age: 79 Year

DRUGS (1)
  1. BAMLANIVIMAB 700MG [Suspect]
     Active Substance: BAMLANIVIMAB
     Indication: COVID-19
     Dosage: UNK UNK, UNKNOWN
     Route: 042

REACTIONS (6)
  - Dyspnoea [Unknown]
  - Vein rupture [Unknown]
  - Helplessness [Unknown]
  - Confusional state [Unknown]
  - Drug ineffective [Unknown]
  - Fatigue [Unknown]
